FAERS Safety Report 7084076-1 (Version None)
Quarter: 2010Q4

REPORT INFORMATION
  Report Type: 
  Country: None (occurrence: None)
  Receive Date: 20101104
  Receipt Date: 20100406
  Transmission Date: 20110411
  Serious: No
  Sender: FDA-Public Use
  Company Number: US-ABBOTT-10P-163-0630366-00

PATIENT
  Sex: Male
  Weight: 69.916 kg

DRUGS (5)
  1. KALETRA [Suspect]
     Indication: HIV TEST POSITIVE
     Route: 048
  2. KALETRA [Suspect]
     Indication: HIV TEST POSITIVE
     Dosage: DAILY
     Route: 048
     Dates: start: 20040101
  3. REYATAZ [Concomitant]
     Indication: HIV TEST POSITIVE
     Route: 048
  4. TRUVADA [Concomitant]
     Indication: HIV TEST POSITIVE
     Route: 048
  5. VALIUM [Concomitant]
     Indication: PRODUCT USED FOR UNKNOWN INDICATION

REACTIONS (2)
  - DIARRHOEA [None]
  - DRUG DOSE OMISSION [None]
